FAERS Safety Report 11992526 (Version 1)
Quarter: 2016Q1

REPORT INFORMATION
  Report Type: Spontaneous
  Country: US (occurrence: US)
  Receive Date: 20160203
  Receipt Date: 20160203
  Transmission Date: 20160526
  Serious: No
  Sender: FDA-Public Use
  Company Number: US-UCBSA-2015008087

PATIENT
  Age: 33 Year
  Sex: Female

DRUGS (1)
  1. KEPPRA [Suspect]
     Active Substance: LEVETIRACETAM
     Indication: PRODUCT USED FOR UNKNOWN INDICATION
     Dosage: HALF DOSING IN THE MORNING AND HALF DOSE IN THE EVENING, 2X/DAY (BID)
     Dates: start: 201411

REACTIONS (7)
  - Somnolence [Unknown]
  - Fatigue [Unknown]
  - Hypoaesthesia [Unknown]
  - Muscle spasms [Unknown]
  - Abnormal behaviour [Unknown]
  - Seizure [Unknown]
  - Rash [Unknown]
